FAERS Safety Report 24845719 (Version 1)
Quarter: 2025Q1

REPORT INFORMATION
  Report Type: Spontaneous
  Country: BG (occurrence: BG)
  Receive Date: 20250115
  Receipt Date: 20250115
  Transmission Date: 20250409
  Serious: Yes (Life-Threatening, Hospitalization)
  Sender: ABBVIE
  Company Number: None

PATIENT
  Age: 35 Year
  Sex: Male
  Weight: 61 kg

DRUGS (1)
  1. RINVOQ [Suspect]
     Active Substance: UPADACITINIB
     Indication: Ankylosing spondylitis
     Dosage: ONE TABLET DAILY
     Route: 048
     Dates: start: 20230102, end: 20241116

REACTIONS (4)
  - Renal infarct [Recovering/Resolving]
  - Acute kidney injury [Recovering/Resolving]
  - Pulmonary embolism [Recovering/Resolving]
  - Renal artery thrombosis [Recovering/Resolving]

NARRATIVE: CASE EVENT DATE: 20241117
